FAERS Safety Report 7572487-7 (Version None)
Quarter: 2011Q2

REPORT INFORMATION
  Report Type: 
  Country: None (occurrence: None)
  Receive Date: 20110627
  Receipt Date: 20110622
  Transmission Date: 20111010
  Serious: Yes (Hospitalization)
  Sender: FDA-Public Use
  Company Number: MX-BRISTOL-MYERS SQUIBB COMPANY-15818362

PATIENT
  Age: 32 Year
  Sex: Female

DRUGS (4)
  1. BELATACEPT [Suspect]
     Indication: RENAL TRANSPLANT
     Route: 042
     Dates: start: 20070320
  2. PREDNISONE [Suspect]
     Dates: start: 20070322
  3. ENALAPRIL MALEATE [Concomitant]
     Dates: start: 20080420
  4. MYCOPHENOLATE MEFETIL [Suspect]
     Dates: start: 20070319, end: 20110611

REACTIONS (2)
  - GASTROINTESTINAL BACTERIAL INFECTION [None]
  - DIARRHOEA [None]
